FAERS Safety Report 7335883-9 (Version None)
Quarter: 2011Q1

REPORT INFORMATION
  Report Type: 
  Country: None (occurrence: None)
  Receive Date: 20110301
  Receipt Date: 20110301
  Transmission Date: 20110831
  Serious: Yes (Hospitalization)
  Sender: FDA-Public Use
  Company Number: None

PATIENT
  Age: 59 Year
  Sex: Male
  Weight: 69 kg

DRUGS (1)
  1. TOPIRAMATE [Suspect]
     Indication: CONVULSION
     Dosage: 25 MG BID PO
     Route: 048
     Dates: start: 20101210, end: 20110110

REACTIONS (7)
  - METABOLIC ACIDOSIS [None]
  - SOMNOLENCE [None]
  - PARANOIA [None]
  - COMA [None]
  - MENTAL STATUS CHANGES [None]
  - POOR QUALITY SLEEP [None]
  - CONFUSIONAL STATE [None]
